FAERS Safety Report 21632185 (Version 1)
Quarter: 2022Q4

REPORT INFORMATION
  Report Type: Spontaneous
  Country: US (occurrence: US)
  Receive Date: 20221123
  Receipt Date: 20221123
  Transmission Date: 20230113
  Serious: Yes (Hospitalization, Other)
  Sender: FDA-Public Use
  Company Number: US-ASTELLAS-2022US041195

PATIENT
  Age: 64 Year
  Sex: Male

DRUGS (3)
  1. TACROLIMUS [Suspect]
     Active Substance: TACROLIMUS
     Indication: Lung transplant
     Dosage: UNK UNK, UNKNOWN FREQ.
     Route: 065
  2. MYCOPHENOLATE MOFETIL [Concomitant]
     Active Substance: MYCOPHENOLATE MOFETIL
     Indication: Lung transplant
     Dosage: UNK UNK, UNKNOWN FREQ.
     Route: 065
  3. PREDNISONE [Concomitant]
     Active Substance: PREDNISONE
     Indication: Lung transplant
     Dosage: UNK UNK, UNKNOWN FREQ.
     Route: 065

REACTIONS (11)
  - Malacoplakia [Recovered/Resolved]
  - Pseudomonas infection [Unknown]
  - Graft infection [Unknown]
  - Escherichia infection [Unknown]
  - Cytomegalovirus viraemia [Unknown]
  - Pneumonia pseudomonal [Unknown]
  - Pneumonia escherichia [Not Recovered/Not Resolved]
  - Infection [Unknown]
  - Septic shock [Recovered/Resolved]
  - Skin bacterial infection [Recovered/Resolved]
  - Bacterial disease carrier [Not Recovered/Not Resolved]
